FAERS Safety Report 25376273 (Version 1)
Quarter: 2025Q2

REPORT INFORMATION
  Report Type: Spontaneous
  Country: FI (occurrence: FI)
  Receive Date: 20250529
  Receipt Date: 20250529
  Transmission Date: 20250717
  Serious: Yes (Disabling)
  Sender: TEVA
  Company Number: None

PATIENT
  Age: 40 Year
  Sex: Male

DRUGS (2)
  1. ARIPIPRAZOLE [Suspect]
     Active Substance: ARIPIPRAZOLE
     Indication: Schizophrenia
     Dosage: ONE (1) TEN MILLIGRAM (10MG) TABLET EVERY MORNING. /?1 TABLET (10 MG) A DAY IN THE MORNING, ARIPI...
     Route: 048
     Dates: start: 2022
  2. OLANZAPINE [Concomitant]
     Active Substance: OLANZAPINE
     Indication: Schizophrenia
     Dosage: ONE (1) TEN MILLIGRAM (10MG) TABLET ONCE A DAY IN THE EVENING. /?1 TABLET (10 MG) A DAY IN THE EV...
     Route: 065
     Dates: start: 2022

REACTIONS (2)
  - Brain fog [Not Recovered/Not Resolved]
  - Learning disorder [Not Recovered/Not Resolved]

NARRATIVE: CASE EVENT DATE: 20230101
